FAERS Safety Report 8531689-3 (Version None)
Quarter: 2012Q3

REPORT INFORMATION
  Report Type: 
  Country: None (occurrence: None)
  Receive Date: 20120711
  Receipt Date: 20120627
  Transmission Date: 20120928
  Serious: Yes (Hospitalization)
  Sender: FDA-Public Use
  Company Number: 2012-002458

PATIENT
  Sex: Female

DRUGS (1)
  1. ACTONEL EC ONCE-A-WEEK (RISEDRONATE SODIUM EDETATE DISODIUM) TABLET, 3 [Suspect]
     Dosage: ORAL
     Route: 048

REACTIONS (1)
  - STEVENS-JOHNSON SYNDROME [None]
